FAERS Safety Report 19304461 (Version 1)
Quarter: 2021Q2

REPORT INFORMATION
  Report Type: Spontaneous
  Country: US (occurrence: US)
  Receive Date: 20210525
  Receipt Date: 20210525
  Transmission Date: 20210717
  Serious: No
  Sender: FDA-Public Use
  Company Number: US-PFIZER INC-2021143258

PATIENT
  Age: 41 Year

DRUGS (1)
  1. RELPAX [Suspect]
     Active Substance: ELETRIPTAN HYDROBROMIDE
     Indication: HEADACHE
     Dosage: 20 MG, AS NEEDED
     Route: 048

REACTIONS (2)
  - Off label use [Unknown]
  - Migraine [Recovered/Resolved]
